FAERS Safety Report 6960280-5 (Version None)
Quarter: 2010Q3

REPORT INFORMATION
  Report Type: 
  Country: None (occurrence: None)
  Receive Date: 20100901
  Receipt Date: 20100820
  Transmission Date: 20110219
  Serious: Yes (Hospitalization, Other)
  Sender: FDA-Public Use
  Company Number: JP-PFIZER INC-2010094937

PATIENT
  Age: 74 Year
  Sex: Male
  Weight: 63 kg

DRUGS (5)
  1. SUTENT [Suspect]
     Indication: RENAL CELL CARCINOMA
     Dosage: 37.5 MG, 1X/DAY
     Route: 048
     Dates: start: 20100626, end: 20100707
  2. GLYSENNID [Concomitant]
     Indication: CONSTIPATION
     Dosage: 1 DF, 1X/DAY
     Route: 048
     Dates: start: 20100628, end: 20100628
  3. GLYSENNID [Concomitant]
     Dosage: 1 DF, 1X/DAY
     Route: 048
     Dates: start: 20100630, end: 20100630
  4. GLYSENNID [Concomitant]
     Dosage: 1 DF, 1X/DAY
     Route: 048
     Dates: start: 20100704, end: 20100704
  5. LECICARBON [Concomitant]
     Indication: CONSTIPATION
     Dosage: 1 DF, 1X/DAY
     Dates: start: 20100624, end: 20100627

REACTIONS (3)
  - DYSARTHRIA [None]
  - GAIT DISTURBANCE [None]
  - STEVENS-JOHNSON SYNDROME [None]
